FAERS Safety Report 10251833 (Version 1)
Quarter: 2014Q2

REPORT INFORMATION
  Report Type: Spontaneous
  Country: US (occurrence: None)
  Receive Date: 20140619
  Receipt Date: 20140619
  Transmission Date: 20141212
  Serious: Yes (Other)
  Sender: FDA-Public Use
  Company Number: UCM201406-000094

PATIENT
  Age: 81 Year
  Sex: Female

DRUGS (9)
  1. HYDROCHLOROTHIAZIDE (HYDROCHLOROTHIAZIDE) (HYDROCHLOROTHIAZIDE) [Suspect]
     Indication: HYPERTENSION
  2. AMLODIPINE [Concomitant]
  3. VALSARTAN (VALSARTAN) (VALSARTAN) [Concomitant]
  4. ATORVASTATIN (ATORVASTATIN) (ATORVASTATIN) [Concomitant]
  5. ASPIRIN (ACETYLSALICYLIC ACID) (ACETYLSALICYLIC ACID) [Concomitant]
  6. COLACE (DOCUSATE SODIUM) (DOCUSATE SODIUM) [Concomitant]
  7. SENNA (SENNA) (SENNA) [Concomitant]
  8. QUETIAPINE (QUETIAPINE) (QUETIAPINE) [Concomitant]
  9. CLONAZEPAM (CLONAZEPAM) (CLONAZEPAM) [Concomitant]

REACTIONS (1)
  - Subacute cutaneous lupus erythematosus [None]
